FAERS Safety Report 11228608 (Version 1)
Quarter: 2015Q2

REPORT INFORMATION
  Report Type: Spontaneous
  Country: BE (occurrence: BE)
  Receive Date: 20150630
  Receipt Date: 20150630
  Transmission Date: 20150821
  Serious: Yes (Other)
  Sender: FDA-Public Use
  Company Number: BE-BAYER-2015-363273

PATIENT
  Age: 30 Year
  Sex: Female

DRUGS (3)
  1. BETAMETHASONE [Concomitant]
     Active Substance: BETAMETHASONE
     Dosage: UNK
  2. NIFEDIPINE. [Suspect]
     Active Substance: NIFEDIPINE
     Indication: PREMATURE LABOUR
     Dosage: UNK
  3. ATOSIBAN [Concomitant]
     Active Substance: ATOSIBAN
     Dosage: UNK

REACTIONS (3)
  - Premature delivery [None]
  - Product use issue [None]
  - Maternal exposure during pregnancy [None]
